FAERS Safety Report 5322182-X (Version None)
Quarter: 2007Q2

REPORT INFORMATION
  Report Type: 
  Country: None (occurrence: None)
  Receive Date: 20070511
  Receipt Date: 20070503
  Transmission Date: 20071010
  Serious: Yes (Hospitalization)
  Sender: FDA-Public Use
  Company Number: PHBS2007US07613

PATIENT
  Age: 38 Year
  Sex: Male

DRUGS (6)
  1. CLOZAPINE [Suspect]
     Indication: PSYCHOTIC DISORDER
     Dosage: 600 MG/D
     Route: 065
  2. CLOZAPINE [Suspect]
     Dosage: 150 MG/D
     Route: 065
  3. ZIPRASIDONE [Concomitant]
     Dosage: 160 MG/D
     Route: 065
  4. VALPROIC ACID [Concomitant]
     Dosage: 2000 MG/D
     Route: 065
  5. CHLORAL HYDRATE [Concomitant]
     Dosage: 3000 MG/D
     Route: 065
  6. CLONAZEPAM [Concomitant]
     Route: 065

REACTIONS (20)
  - ABNORMAL BEHAVIOUR [None]
  - AFFECT LABILITY [None]
  - AGGRESSION [None]
  - AGITATION [None]
  - ATROPHY [None]
  - COORDINATION ABNORMAL [None]
  - DELIRIUM [None]
  - DRUG LEVEL ABOVE THERAPEUTIC [None]
  - ELECTROENCEPHALOGRAM ABNORMAL [None]
  - FEAR [None]
  - HALLUCINATION, AUDITORY [None]
  - HALLUCINATION, VISUAL [None]
  - IRRITABILITY [None]
  - MASKED FACIES [None]
  - MOTOR DYSFUNCTION [None]
  - MYDRIASIS [None]
  - NARCOLEPSY [None]
  - SEDATION [None]
  - STEREOTYPY [None]
  - STUPOR [None]
